FAERS Safety Report 25039670 (Version 6)
Quarter: 2025Q4

REPORT INFORMATION
  Report Type: Spontaneous
  Country: EU (occurrence: EU)
  Receive Date: 20250305
  Receipt Date: 20251231
  Transmission Date: 20260118
  Serious: Yes (Other)
  Sender: Kenvue
  Company Number: EU-ELI_LILLY_AND_COMPANY-ES202412001364

PATIENT
  Age: 56 Year

DRUGS (9)
  1. LOPERAMIDE HYDROCHLORIDE [Suspect]
     Active Substance: LOPERAMIDE HYDROCHLORIDE
     Indication: Diarrhoea
     Dosage: UNK, UNKNOWN
     Route: 065
  2. ABEMACICLIB [Suspect]
     Active Substance: ABEMACICLIB
     Indication: Breast cancer
     Dosage: 150 MG, UNKNOWN
     Route: 061
  3. ABEMACICLIB [Suspect]
     Active Substance: ABEMACICLIB
     Dosage: 100 MG, UNKNOWN
     Route: 061
  4. ABEMACICLIB [Suspect]
     Active Substance: ABEMACICLIB
     Dosage: 100 MG, UNKNOWN
     Route: 061
  5. ABEMACICLIB [Suspect]
     Active Substance: ABEMACICLIB
     Dosage: 100 MG, UNKNOWN
     Route: 061
  6. ABEMACICLIB [Suspect]
     Active Substance: ABEMACICLIB
     Dosage: 50 MG, UNKNOWN
     Route: 061
  7. CALCIUM CARBONATE\CHOLECALCIFEROL [Suspect]
     Active Substance: CALCIUM CARBONATE\CHOLECALCIFEROL
     Indication: Osteoporosis
     Dosage: UNK, UNKNOWN
     Route: 065
  8. LETROZOLE [Concomitant]
     Active Substance: LETROZOLE
     Indication: Breast cancer
     Dosage: UNK
     Route: 065
  9. DENOSUMAB [Concomitant]
     Active Substance: DENOSUMAB
     Indication: Osteoporosis
     Dosage: UNK
     Route: 065

REACTIONS (22)
  - Diverticulitis [Recovering/Resolving]
  - Ear pain [Recovering/Resolving]
  - Back pain [Recovering/Resolving]
  - Onychoclasis [Recovering/Resolving]
  - Psoriasis [Recovering/Resolving]
  - Haemorrhoids [Recovering/Resolving]
  - Mucosal inflammation [Recovering/Resolving]
  - Visual impairment [Recovering/Resolving]
  - Pallor [Recovering/Resolving]
  - Constipation [Recovering/Resolving]
  - Osteoporosis [Recovering/Resolving]
  - Nervousness [Recovering/Resolving]
  - Decreased immune responsiveness [Recovering/Resolving]
  - Vitamin D decreased [Recovering/Resolving]
  - Insomnia [Unknown]
  - Pain in extremity [Recovering/Resolving]
  - Diarrhoea [Recovered/Resolved]
  - Platelet count decreased [Recovered/Resolved]
  - Neutrophil count decreased [Recovering/Resolving]
  - Lacrimation increased [Recovering/Resolving]
  - Alopecia [Recovering/Resolving]
  - Stomatitis [Recovering/Resolving]
